FAERS Safety Report 6873091-6 (Version None)
Quarter: 2010Q3

REPORT INFORMATION
  Report Type: 
  Country: None (occurrence: None)
  Receive Date: 20100723
  Receipt Date: 20100316
  Transmission Date: 20110219
  Serious: No
  Sender: FDA-Public Use
  Company Number: US-PFIZER INC-2008081176

PATIENT
  Sex: Female

DRUGS (1)
  1. CHANTIX [Suspect]
     Dosage: 1 MG, 2X/DAY
     Dates: end: 20100316

REACTIONS (1)
  - GASTROOESOPHAGEAL REFLUX DISEASE [None]
